FAERS Safety Report 14193543 (Version 1)
Quarter: 2017Q4

REPORT INFORMATION
  Report Type: Spontaneous
  Country: US (occurrence: US)
  Receive Date: 20171115
  Receipt Date: 20171115
  Transmission Date: 20180321
  Serious: No
  Sender: FDA-Public Use
  Company Number: US-BAUSCH-BL-2017-004882

PATIENT
  Age: 62 Year
  Sex: Female
  Weight: 59.02 kg

DRUGS (4)
  1. AMITRIPTYLINE [Concomitant]
     Active Substance: AMITRIPTYLINE
     Indication: SLEEP DISORDER
  2. XENAZINE [Suspect]
     Active Substance: TETRABENAZINE
     Indication: RESTLESS LEGS SYNDROME
     Route: 065
  3. XENAZINE [Suspect]
     Active Substance: TETRABENAZINE
     Indication: PRODUCT USED FOR UNKNOWN INDICATION
     Route: 048
     Dates: start: 201701
  4. XENAZINE [Suspect]
     Active Substance: TETRABENAZINE
     Indication: NERVOUSNESS
     Route: 048
     Dates: start: 20170118, end: 201701

REACTIONS (3)
  - No adverse event [Unknown]
  - Drug dose omission [Unknown]
  - Off label use [Unknown]

NARRATIVE: CASE EVENT DATE: 20170221
